FAERS Safety Report 6214081-6 (Version None)
Quarter: 2009Q2

REPORT INFORMATION
  Report Type: 
  Country: None (occurrence: None)
  Receive Date: 20090601
  Receipt Date: 20090601
  Transmission Date: 20091009
  Serious: Yes (Hospitalization)
  Sender: FDA-Public Use
  Company Number: None

PATIENT
  Age: 31 Year
  Sex: Female
  Weight: 61.2356 kg

DRUGS (2)
  1. RISPERIDONE [Suspect]
     Indication: MIGRAINE
     Dosage: 2MG/2ML SOLUTION ONCE DAILY PO
     Route: 048
     Dates: start: 20090326, end: 20090402
  2. HYDROXYZINE HCL [Suspect]
     Indication: MIGRAINE
     Dosage: 100MG/2ML 50MG-100MG PRN IM
     Route: 030
     Dates: start: 20081219, end: 20090402

REACTIONS (8)
  - AKATHISIA [None]
  - BLOOD PRESSURE INCREASED [None]
  - CHEST PAIN [None]
  - ELECTROCARDIOGRAM QRS COMPLEX ABNORMAL [None]
  - PALPITATIONS [None]
  - SELF-MEDICATION [None]
  - SINUS ARRHYTHMIA [None]
  - SINUS TACHYCARDIA [None]
